FAERS Safety Report 5191284-3 (Version None)
Quarter: 2006Q4

REPORT INFORMATION
  Report Type: 
  Country: None (occurrence: None)
  Receive Date: 20061220
  Receipt Date: 20061220
  Transmission Date: 20070319
  Serious: No
  Sender: FDA-Public Use
  Company Number: None

PATIENT
  Sex: Male
  Weight: 97.5234 kg

DRUGS (1)
  1. RITUXAN [Suspect]

REACTIONS (3)
  - ILL-DEFINED DISORDER [None]
  - NASOPHARYNGITIS [None]
  - VISUAL DISTURBANCE [None]
